FAERS Safety Report 4817134-X (Version None)
Quarter: 2005Q4

REPORT INFORMATION
  Report Type: 
  Country: None (occurrence: None)
  Receive Date: 20051101
  Receipt Date: 20040130
  Transmission Date: 20060501
  Serious: Yes (Hospitalization)
  Sender: FDA-Public Use
  Company Number: FR-ROCHE-357926

PATIENT
  Age: 67 Year
  Sex: Male
  Weight: 76.5 kg

DRUGS (4)
  1. PEG-INTERFERON ALFA 2A (RO 25-8310) [Suspect]
     Route: 058
     Dates: start: 20030403, end: 20040331
  2. RIBAVIRIN [Suspect]
     Route: 048
     Dates: start: 20030403
  3. RIBAVIRIN [Suspect]
     Route: 048
     Dates: start: 20031215
  4. PROGRAF [Concomitant]
     Route: 048
     Dates: start: 20040107

REACTIONS (4)
  - ANAEMIA [None]
  - HAEMOPTYSIS [None]
  - LUNG DISORDER [None]
  - PYREXIA [None]
